FAERS Safety Report 16250526 (Version 2)
Quarter: 2019Q3

REPORT INFORMATION
  Report Type: Spontaneous
  Country: US (occurrence: US)
  Receive Date: 20190429
  Receipt Date: 20190711
  Transmission Date: 20191004
  Serious: No
  Sender: FDA-Public Use
  Company Number: US-PFIZER INC-2018448174

PATIENT
  Age: 71 Year
  Sex: Female
  Weight: 87.98 kg

DRUGS (2)
  1. CHANTIX [Suspect]
     Active Substance: VARENICLINE TARTRATE
     Indication: SMOKING CESSATION THERAPY
     Dosage: 1 MG, 2X/DAY
     Route: 048
  2. CHANTIX [Suspect]
     Active Substance: VARENICLINE TARTRATE
     Dosage: UNK, 2X/DAY(1.5MG, 1 TABLET BY MOUTH IN THE MORNING AND AT NIGHT)
     Route: 048

REACTIONS (3)
  - Off label use [Unknown]
  - Product use issue [Unknown]
  - Malaise [Unknown]
